FAERS Safety Report 8268412-6 (Version None)
Quarter: 2012Q2

REPORT INFORMATION
  Report Type: 
  Country: None (occurrence: None)
  Receive Date: 20120409
  Receipt Date: 20120405
  Transmission Date: 20120825
  Serious: Yes (Hospitalization)
  Sender: FDA-Public Use
  Company Number: GB-ABBOTT-12P-167-0922242-00

PATIENT
  Sex: Male

DRUGS (2)
  1. HUMIRA [Suspect]
     Dosage: 80MG LOADING DOSE
     Dates: end: 20120301
  2. HUMIRA [Suspect]
     Indication: PRODUCT USED FOR UNKNOWN INDICATION
     Dosage: 160MG LOADING DOSE
     Dates: start: 20120218

REACTIONS (3)
  - TUBERCULOSIS [None]
  - BODY TEMPERATURE [None]
  - HEADACHE [None]
